FAERS Safety Report 16787425 (Version 1)
Quarter: 2019Q3

REPORT INFORMATION
  Report Type: Report from Study
  Country: IR (occurrence: IR)
  Receive Date: 20190909
  Receipt Date: 20190909
  Transmission Date: 20191005
  Serious: Yes (Life-Threatening, Hospitalization, Other)
  Sender: FDA-Public Use
  Company Number: IR-BAYER-2019-157447

PATIENT
  Age: 62 Year
  Sex: Female

DRUGS (4)
  1. LEVOTHYROXINE. [Concomitant]
     Active Substance: LEVOTHYROXINE
     Indication: HORMONE THERAPY
     Dosage: 1 DF
     Route: 048
     Dates: start: 20160101
  2. CARVEDILOL. [Concomitant]
     Active Substance: CARVEDILOL
     Indication: HYPERTENSION
     Dosage: 6.25 DAILY
     Route: 048
     Dates: end: 20190817
  3. NEXAVAR [Suspect]
     Active Substance: SORAFENIB
     Indication: MEDULLARY THYROID CANCER
     Dosage: 200 MG, BID
     Route: 048
     Dates: start: 20190522, end: 20190817
  4. LOSARTAN. [Concomitant]
     Active Substance: LOSARTAN
     Indication: HYPERTENSION
     Dosage: 50 MG, BID
     Route: 048
     Dates: end: 20190817

REACTIONS (3)
  - Abnormal loss of weight [Recovering/Resolving]
  - Hypertension [Recovering/Resolving]
  - Decreased appetite [Recovering/Resolving]

NARRATIVE: CASE EVENT DATE: 20190810
